FAERS Safety Report 23652588 (Version 5)
Quarter: 2024Q2

REPORT INFORMATION
  Report Type: Spontaneous
  Country: JP (occurrence: None)
  Receive Date: 20240320
  Receipt Date: 20240424
  Transmission Date: 20240716
  Serious: Yes (Other)
  Sender: FDA-Public Use
  Company Number: 2024A064266

PATIENT
  Age: 80 Year
  Sex: Male
  Weight: 48 kg

DRUGS (13)
  1. ONDEXXYA [Suspect]
     Active Substance: ANDEXANET ALFA
     Indication: Subdural haematoma
     Dosage: SEE NARRATIVE1760.0MG UNKNOWN
     Route: 042
     Dates: start: 20240202, end: 20240202
  2. XARELTO [Concomitant]
     Active Substance: RIVAROXABAN
     Dosage: DOSE UNKNOWN
  3. XARELTO [Concomitant]
     Active Substance: RIVAROXABAN
     Dosage: DOSE UNKNOWN
     Dates: start: 20240206
  4. BISOPROLOL [Concomitant]
     Active Substance: BISOPROLOL\BISOPROLOL FUMARATE
     Indication: Atrial fibrillation
     Route: 062
     Dates: start: 20240203, end: 20240203
  5. BISOPROLOL [Concomitant]
     Active Substance: BISOPROLOL\BISOPROLOL FUMARATE
     Indication: Angina pectoris
     Route: 048
     Dates: start: 20240205, end: 20240326
  6. TORSEMIDE [Concomitant]
     Active Substance: TORSEMIDE
     Indication: Oedema due to cardiac disease
     Route: 048
     Dates: start: 2024, end: 2024
  7. LANSOPRAZOLE [Concomitant]
     Active Substance: LANSOPRAZOLE
     Indication: Peptic ulcer
     Route: 048
     Dates: start: 2024, end: 2024
  8. FEBUXOSTAT [Concomitant]
     Active Substance: FEBUXOSTAT
     Indication: Hyperuricaemia
     Route: 048
     Dates: start: 2024, end: 2024
  9. AMLODIPINE [Concomitant]
     Active Substance: AMLODIPINE BESYLATE
     Indication: Hypertension
     Route: 048
     Dates: start: 2024, end: 2024
  10. LOSARTAN POTASSIUM [Concomitant]
     Active Substance: LOSARTAN POTASSIUM
     Indication: Hypertension
     Route: 048
     Dates: start: 2024, end: 2024
  11. ESTAZOLAM [Concomitant]
     Active Substance: ESTAZOLAM
     Dosage: DOSE UNKNOWN
  12. LEVETIRACETAM [Concomitant]
     Active Substance: LEVETIRACETAM
     Indication: Oedema due to cardiac disease
     Route: 048
     Dates: start: 2024, end: 2024
  13. LACOSAMIDE [Concomitant]
     Active Substance: LACOSAMIDE
     Indication: Oedema due to cardiac disease
     Route: 048
     Dates: start: 2024, end: 2024

REACTIONS (2)
  - Cerebral infarction [Not Recovered/Not Resolved]
  - COVID-19 [Recovered/Resolved]

NARRATIVE: CASE EVENT DATE: 20240203
